FAERS Safety Report 14329288 (Version 1)
Quarter: 2017Q4

REPORT INFORMATION
  Report Type: Spontaneous
  Country: US (occurrence: US)
  Receive Date: 20171227
  Receipt Date: 20171227
  Transmission Date: 20180321
  Serious: No
  Sender: FDA-Public Use
  Company Number: US-BAYER-2017-241393

PATIENT
  Age: 53 Year
  Sex: Female
  Weight: 62 kg

DRUGS (5)
  1. HYDROCHLOROTHIAZID [Concomitant]
     Active Substance: HYDROCHLOROTHIAZIDE
     Dosage: UNK
  2. DULCOLAX (BISACODYL) [Concomitant]
     Active Substance: BISACODYL
     Dosage: UNK
  3. MIRALAX [Suspect]
     Active Substance: POLYETHYLENE GLYCOL 3350
     Indication: COLONOSCOPY
  4. PHILLIPS^ LIQUID GELS STOOL SOFTENER [Suspect]
     Active Substance: DOCUSATE SODIUM
     Indication: COLONOSCOPY
     Dosage: UNK
     Route: 048
     Dates: start: 20171026
  5. MIRALAX [Suspect]
     Active Substance: POLYETHYLENE GLYCOL 3350
     Indication: GASTROINTESTINAL DISORDER
     Dosage: 1 DF, QD
     Route: 048
     Dates: start: 20171028

REACTIONS (6)
  - Drug administration error [None]
  - Product use in unapproved indication [Unknown]
  - Product use issue [Unknown]
  - Product physical consistency issue [None]
  - Product solubility abnormal [Unknown]
  - Off label use [Unknown]

NARRATIVE: CASE EVENT DATE: 20171026
